FAERS Safety Report 8143690-2 (Version None)
Quarter: 2012Q1

REPORT INFORMATION
  Report Type: 
  Country: None (occurrence: None)
  Receive Date: 20120217
  Receipt Date: 20120215
  Transmission Date: 20120608
  Serious: No
  Sender: FDA-Public Use
  Company Number: US-TEVA-321691USA

PATIENT
  Sex: Female
  Weight: 52.664 kg

DRUGS (5)
  1. NYQUIL [Concomitant]
     Indication: NASOPHARYNGITIS
  2. DRIXORAL [Concomitant]
     Indication: PYREXIA
  3. PLAN B ONE-STEP [Suspect]
     Indication: POST COITAL CONTRACEPTION
     Dosage: 1.5 MILLIGRAM;
     Route: 048
     Dates: start: 20120131, end: 20120131
  4. DRIXORAL [Concomitant]
     Indication: NASOPHARYNGITIS
  5. NYQUIL [Concomitant]
     Indication: PYREXIA

REACTIONS (1)
  - MENSTRUATION DELAYED [None]
